FAERS Safety Report 6380720-2 (Version None)
Quarter: 2009Q3

REPORT INFORMATION
  Report Type: 
  Country: None (occurrence: None)
  Receive Date: 20090929
  Receipt Date: 20090918
  Transmission Date: 20100115
  Serious: Yes (Disabling)
  Sender: FDA-Public Use
  Company Number: FR-CELGENEUS-056-50794-09082286

PATIENT
  Sex: Female

DRUGS (1)
  1. VIDAZA [Suspect]
     Route: 058
     Dates: start: 20080922

REACTIONS (1)
  - HYPOACUSIS [None]
